FAERS Safety Report 9845919 (Version 1)
Quarter: 2013Q4

REPORT INFORMATION
  Report Type: Spontaneous
  Country: US (occurrence: None)
  Receive Date: 20131219
  Receipt Date: 20131219
  Transmission Date: 20140711
  Serious: Yes (Other)
  Sender: FDA-Public Use
  Company Number: 163-20785-13041274

PATIENT
  Age: 64 Year
  Sex: Male

DRUGS (21)
  1. THALIDOMIDE (THALIDOMIDE) [Suspect]
     Indication: PLASMA CELL MYELOMA
     Dosage: 200 MG, 1 IN  1 D, PO
     Route: 048
     Dates: start: 200410
  2. DECADRON [Suspect]
     Indication: PRODUCT USED FOR UNKNOWN INDICATION
     Dosage: 20 MG, 5 IN 1 D, PO
     Route: 048
  3. OXYCONTIN (OXYCODONE HYDROCHLORIDE) (TABLETS) [Concomitant]
  4. OXYCODONE HCL (OXYCODONE HYDROCHLORIDE) [Concomitant]
  5. FOLIC ACID (FOLIC ACID) [Concomitant]
  6. LASIX (FUROSEMIDE) [Concomitant]
  7. GLIPIZIDE ER (GLIPIZIDE) [Concomitant]
  8. PROTONIX [Concomitant]
  9. FLOMAX (TAMSULOSIN HYDROCHLORIDE) [Concomitant]
  10. VENLAFAXINE HCL (VENLAFAXINE HYDROCHLORIDE) [Concomitant]
  11. AMBIEN (ZOLPIDEM TARTRATE) [Concomitant]
  12. ASPRINE (ACETYLSALICYLIC ACID) [Concomitant]
  13. CELEBREX (CELECOXIB) [Concomitant]
  14. COMPAZINE (PROCHLORPERAZINE EDISYLATE) [Concomitant]
  15. HUMULIN R (INSULIN HUMAN) (INJECTION) [Concomitant]
  16. HUMULIN N (INSULIN HUMAN INJECTION, ISOPHANE)(INJECTION) [Concomitant]
  17. BACTROBAN (MUPIROCIN) [Concomitant]
  18. CALCIUM CITRATE (CALCIUM CITRATE) [Concomitant]
  19. CENTRUM SILVER (CENTRUM SILVER) [Concomitant]
  20. LIPTOR (ATORVASTATIN) [Concomitant]
  21. VALTREX (VALACICLOVIR HYDROCHLORIDE) [Concomitant]

REACTIONS (2)
  - Diabetes mellitus [None]
  - Diabetic neuropathy [None]
